FAERS Safety Report 6185931-7 (Version None)
Quarter: 2009Q2

REPORT INFORMATION
  Report Type: 
  Country: None (occurrence: None)
  Receive Date: 20090511
  Receipt Date: 20090507
  Transmission Date: 20091009
  Serious: Yes (Life-Threatening, Hospitalization)
  Sender: FDA-Public Use
  Company Number: IT-BAYER-200826516GPV

PATIENT
  Age: 50 Year
  Sex: Male
  Weight: 82 kg

DRUGS (23)
  1. SORAFENIB [Suspect]
     Indication: NON-SMALL CELL LUNG CANCER
     Dosage: TOTAL DAILY DOSE: 800 MG
     Route: 048
     Dates: start: 20080716, end: 20080914
  2. CISPLATIN [Suspect]
     Indication: NON-SMALL CELL LUNG CANCER
     Dosage: UNIT DOSE: 75 MG/M2
     Route: 042
     Dates: start: 20080716, end: 20080716
  3. CISPLATIN [Suspect]
     Dosage: UNIT DOSE: 75 MG/M2
     Route: 042
     Dates: start: 20080806, end: 20080806
  4. CISPLATIN [Suspect]
     Dosage: UNIT DOSE: 75 MG/M2
     Route: 042
     Dates: start: 20080827, end: 20080827
  5. GEMCITABINE [Suspect]
     Indication: NON-SMALL CELL LUNG CANCER
     Dosage: UNIT DOSE: 1250 MG/M2
     Route: 042
     Dates: start: 20080716, end: 20080716
  6. GEMCITABINE [Suspect]
     Dosage: UNIT DOSE: 1250 MG/M2
     Route: 042
     Dates: start: 20080827, end: 20080827
  7. GEMCITABINE [Suspect]
     Dosage: UNIT DOSE: 1250 MG/M2
     Route: 042
     Dates: start: 20080813, end: 20080813
  8. GEMCITABINE [Suspect]
     Dosage: UNIT DOSE: 1250 MG/M2
     Route: 042
     Dates: start: 20080903, end: 20080903
  9. GEMCITABINE [Suspect]
     Dosage: UNIT DOSE: 1250 MG/M2
     Route: 042
     Dates: start: 20080806, end: 20080806
  10. GEMCITABINE [Suspect]
     Dosage: UNIT DOSE: 1250 MG/M2
     Route: 042
     Dates: start: 20080723, end: 20080723
  11. PROCAPTAN [Concomitant]
     Indication: HYPERTENSION
     Route: 048
     Dates: start: 20070101, end: 20080913
  12. CARDIOVASC [Concomitant]
     Indication: HYPERTENSION
     Route: 048
     Dates: start: 20040101, end: 20080913
  13. IMODIUM [Concomitant]
     Indication: DIARRHOEA
     Route: 065
     Dates: start: 20080814, end: 20080814
  14. OMEPRAZOLE [Concomitant]
     Indication: PROPHYLAXIS
     Route: 065
     Dates: start: 20080930
  15. DILATREND [Concomitant]
     Indication: HYPERTENSION
     Dosage: TOTAL DAILY DOSE: 12.5 MG
     Route: 065
     Dates: start: 20080914, end: 20081001
  16. DILATREND [Concomitant]
     Route: 065
     Dates: start: 20081002, end: 20081030
  17. DILATREND [Concomitant]
     Route: 065
     Dates: start: 20081101
  18. SINTROM [Concomitant]
     Indication: THROMBOSIS PROPHYLAXIS
     Dosage: DEPENDING ON INR
     Route: 065
     Dates: start: 20080914, end: 20081030
  19. SINTROM [Concomitant]
     Route: 065
     Dates: start: 20081101
  20. CLEXANE [Concomitant]
     Indication: THROMBOSIS PROPHYLAXIS
     Route: 065
     Dates: start: 20081002, end: 20081204
  21. GARDENALE [Concomitant]
     Indication: PROPHYLAXIS
     Route: 065
     Dates: start: 20081013
  22. TORVAST [Concomitant]
     Indication: HYPERCHOLESTEROLAEMIA
     Route: 065
     Dates: start: 20081119
  23. LYRICA [Concomitant]
     Indication: BACK PAIN
     Route: 065
     Dates: start: 20081101

REACTIONS (1)
  - AORTIC DISSECTION [None]
